FAERS Safety Report 6680246-2 (Version None)
Quarter: 2010Q2

REPORT INFORMATION
  Report Type: 
  Country: None (occurrence: None)
  Receive Date: 20100409
  Receipt Date: 20100325
  Transmission Date: 20101027
  Serious: Yes (Other)
  Sender: FDA-Public Use
  Company Number: 2010SCPR000494

PATIENT
  Age: 69 Year
  Sex: Male

DRUGS (1)
  1. PERGOLIDE MESYLATE [Suspect]
     Indication: PARKINSON'S DISEASE

REACTIONS (2)
  - AORTIC VALVE INCOMPETENCE [None]
  - MITRAL VALVE INCOMPETENCE [None]
